FAERS Safety Report 5349279-2 (Version None)
Quarter: 2007Q2

REPORT INFORMATION
  Report Type: 
  Country: None (occurrence: None)
  Receive Date: 20070607
  Receipt Date: 20070604
  Transmission Date: 20071010
  Serious: Yes (Other)
  Sender: FDA-Public Use
  Company Number: A0654103A

PATIENT

DRUGS (2)
  1. ESKALITH [Suspect]
     Indication: DRUG USE FOR UNKNOWN INDICATION
     Dosage: 450MG UNKNOWN
     Route: 048
  2. UNKNOWN [Concomitant]

REACTIONS (1)
  - RENAL FAILURE [None]
